FAERS Safety Report 4962432-2 (Version None)
Quarter: 2006Q1

REPORT INFORMATION
  Report Type: 
  Country: None (occurrence: None)
  Receive Date: 20060329
  Receipt Date: 20060317
  Transmission Date: 20060701
  Serious: Yes (Other)
  Sender: FDA-Public Use
  Company Number: 28906

PATIENT
  Age: 79 Year
  Sex: Male

DRUGS (5)
  1. FLECAINIDE ACETATE [Suspect]
     Indication: ATRIAL FIBRILLATION
     Dosage: 100 MG (50 MG, 2 IN 1 DAY (S)), ORAL
     Route: 048
     Dates: start: 20040101, end: 20060316
  2. DIGITOXIN TAB [Suspect]
  3. CALCIUM SUPPLEMENT [Concomitant]
  4. MULTIVITAMIN [Concomitant]
  5. ASPIRIN [Concomitant]

REACTIONS (3)
  - COUGH [None]
  - LUNG INFILTRATION [None]
  - PNEUMONITIS [None]
